FAERS Safety Report 8963749 (Version 1)
Quarter: 2012Q4

REPORT INFORMATION
  Report Type: 
  Country: DE (occurrence: DE)
  Receive Date: 20121213
  Receipt Date: 20121213
  Transmission Date: 20130627
  Serious: Yes (Other)
  Sender: FDA-Public Use
  Company Number: DE-BAYER-2011-113464

PATIENT
  Age: 57 Year
  Sex: Male

DRUGS (5)
  1. BETAFERON [Suspect]
     Indication: RELAPSING-REMITTING MULTIPLE SCLEROSIS
     Dosage: 8 miu, UNK
     Route: 058
     Dates: start: 199803
  2. ACETYLSALICYLIC ACID [Concomitant]
     Dosage: 100 mg, UNK
  3. BETA BLOCKING AGENTS [Concomitant]
     Indication: HYPERTENSION
  4. ANGIOTENSIN II [Concomitant]
     Indication: HYPERTENSION
  5. SIMVASTATIN [Concomitant]
     Indication: HYPERCHOLESTEROLAEMIA
     Dosage: 20 mg, UNK

REACTIONS (11)
  - Liver function test abnormal [Recovered/Resolved]
  - Alanine aminotransferase increased [None]
  - Leukopenia [Not Recovered/Not Resolved]
  - Influenza like illness [None]
  - Optic neuritis [None]
  - Multiple sclerosis relapse [None]
  - Hypoaesthesia [None]
  - Muscular weakness [None]
  - Injection site abscess [None]
  - Influenza like illness [None]
  - Infection [None]
